FAERS Safety Report 4536341-7 (Version None)
Quarter: 2004Q4

REPORT INFORMATION
  Report Type: 
  Country: None (occurrence: None)
  Receive Date: 20041223
  Receipt Date: 20040720
  Transmission Date: 20050328
  Serious: No
  Sender: FDA-Public Use
  Company Number: US-GLAXOSMITHKLINE-A0519190A

PATIENT
  Age: 8 Year
  Sex: Male

DRUGS (1)
  1. FLONASE [Suspect]
     Route: 045

REACTIONS (2)
  - ILL-DEFINED DISORDER [None]
  - RHINORRHOEA [None]
